FAERS Safety Report 17882169 (Version 1)
Quarter: 2020Q2

REPORT INFORMATION
  Report Type: Spontaneous
  Country: TW (occurrence: CN)
  Receive Date: 20200610
  Receipt Date: 20200610
  Transmission Date: 20200714
  Serious: Yes (Life-Threatening, Hospitalization, Other)
  Sender: FDA-Public Use
  Company Number: CN-AKRON, INC.-2085631

PATIENT
  Age: 20 Year
  Sex: Male

DRUGS (1)
  1. ADENOSINE INJECTION [Suspect]
     Active Substance: ADENOSINE
     Route: 051

REACTIONS (1)
  - Tumour lysis syndrome [Recovering/Resolving]
